FAERS Safety Report 10357777 (Version 1)
Quarter: 2014Q3

REPORT INFORMATION
  Report Type: Spontaneous
  Country: JP (occurrence: JP)
  Receive Date: 20140801
  Receipt Date: 20140801
  Transmission Date: 20150326
  Serious: No
  Sender: FDA-Public Use
  Company Number: PHHY2013JP159443

PATIENT
  Age: 75 Year
  Sex: Male

DRUGS (4)
  1. TASIGNA [Suspect]
     Active Substance: NILOTINIB
     Indication: CHRONIC MYELOID LEUKAEMIA
     Dosage: 400 MG, DAILY
     Dates: start: 20110526
  2. TASIGNA [Suspect]
     Active Substance: NILOTINIB
     Dosage: 400 MG, DAILY
  3. SPRYCEL [Suspect]
     Active Substance: DASATINIB
     Dosage: UNK UKN, UNK
     Dates: start: 201312
  4. TASIGNA [Suspect]
     Active Substance: NILOTINIB
     Dosage: 600 MG, DAILY

REACTIONS (4)
  - Drug ineffective [Unknown]
  - Rash generalised [Unknown]
  - Liver disorder [Unknown]
  - Interstitial lung disease [Unknown]
